FAERS Safety Report 23365146 (Version 1)
Quarter: 2024Q1

REPORT INFORMATION
  Report Type: Spontaneous
  Country: GB (occurrence: GB)
  Receive Date: 20240104
  Receipt Date: 20240104
  Transmission Date: 20240409
  Serious: Yes (Life-Threatening, Hospitalization, Other)
  Sender: FDA-Public Use
  Company Number: None

PATIENT
  Age: 84 Year
  Sex: Male
  Weight: 63 kg

DRUGS (2)
  1. IBRUTINIB [Suspect]
     Active Substance: IBRUTINIB
     Indication: Adverse drug reaction
     Dosage: 420MG OD
     Route: 048
     Dates: start: 20211101, end: 20231010
  2. IBRUTINIB [Suspect]
     Active Substance: IBRUTINIB
     Indication: Adverse drug reaction
     Route: 048

REACTIONS (3)
  - Ascites [Recovering/Resolving]
  - Pleural effusion [Recovering/Resolving]
  - Oedema peripheral [Recovering/Resolving]

NARRATIVE: CASE EVENT DATE: 20230919
